FAERS Safety Report 15082638 (Version 1)
Quarter: 2018Q2

REPORT INFORMATION
  Report Type: Spontaneous
  Country: KR (occurrence: KR)
  Receive Date: 20180628
  Receipt Date: 20180628
  Transmission Date: 20180711
  Serious: Yes (Hospitalization)
  Sender: FDA-Public Use
  Company Number: KR-FRESENIUS KABI-FK201807321

PATIENT
  Age: 44 Year
  Sex: Male

DRUGS (3)
  1. AMLODIPINE [Concomitant]
     Active Substance: AMLODIPINE BESYLATE
     Indication: HYPERTENSION
     Route: 065
  2. FIMASARTAN [Concomitant]
     Active Substance: FIMASARTAN
     Indication: HYPERTENSION
     Route: 065
  3. METHYLPREDNISOLONE (MANUFACTURER UNKNOWN) [Suspect]
     Active Substance: METHYLPREDNISOLONE
     Indication: FACIAL PARALYSIS
     Route: 065

REACTIONS (2)
  - Vertebral artery dissection [Recovered/Resolved with Sequelae]
  - Carotid artery dissection [Recovered/Resolved]
